FAERS Safety Report 21334972 (Version 1)
Quarter: 2022Q3

REPORT INFORMATION
  Report Type: Spontaneous
  Country: US (occurrence: None)
  Receive Date: 20220914
  Receipt Date: 20220914
  Transmission Date: 20221026
  Serious: Yes (Hospitalization)
  Sender: FDA-Public Use
  Company Number: None

PATIENT
  Age: 20 Year
  Sex: Female

DRUGS (1)
  1. GAMMAGARD LIQUID [Suspect]
     Active Substance: HUMAN IMMUNOGLOBULIN G
     Indication: Immunodeficiency common variable
     Dosage: FREQUENCY : WEEKLY;?
     Route: 058
     Dates: start: 20220913

REACTIONS (9)
  - Malaise [None]
  - Loss of consciousness [None]
  - Cyanosis [None]
  - Cyanosis [None]
  - Pallor [None]
  - Tremor [None]
  - Dyskinesia [None]
  - Agonal respiration [None]
  - Infusion related reaction [None]

NARRATIVE: CASE EVENT DATE: 20220913
